FAERS Safety Report 26021304 (Version 2)
Quarter: 2025Q4

REPORT INFORMATION
  Report Type: Report from Study
  Country: EU (occurrence: EU)
  Receive Date: 20251110
  Receipt Date: 20251127
  Transmission Date: 20260118
  Serious: No
  Sender: ABBVIE
  Company Number: EU-ABBVIE-6539180

PATIENT
  Sex: Female
  Weight: 88 kg

DRUGS (4)
  1. BOTOX [Suspect]
     Active Substance: ONABOTULINUMTOXINA
     Indication: Neuralgia
     Dosage: TIME INTERVAL: AS NECESSARY: UNITS; NUMBER OF INJECTION SITES: 40
     Route: 065
     Dates: start: 20240614, end: 20240614
  2. BOTOX [Suspect]
     Active Substance: ONABOTULINUMTOXINA
     Indication: Neuralgia
     Dosage: TIME INTERVAL: AS NECESSARY: UNITS; NUMBER OF INJECTION SITES: 40
     Route: 065
     Dates: start: 20241018, end: 20241018
  3. LACIDIPINE [Concomitant]
     Active Substance: LACIDIPINE
     Indication: Neuralgia
     Route: 065
  4. AMITRIPTYLINE [Concomitant]
     Active Substance: AMITRIPTYLINE
     Indication: Neuralgia
     Route: 065

REACTIONS (1)
  - Drug ineffective [Unknown]
